FAERS Safety Report 7555552-X (Version None)
Quarter: 2011Q2

REPORT INFORMATION
  Report Type: 
  Country: None (occurrence: None)
  Receive Date: 20110617
  Receipt Date: 20050505
  Transmission Date: 20111010
  Serious: Yes (Hospitalization)
  Sender: FDA-Public Use
  Company Number: PHHO2005CO06480

PATIENT
  Sex: Female

DRUGS (5)
  1. TRILEPTAL [Suspect]
     Indication: EPILEPSY
     Dosage: 600 MG, BID
     Route: 048
     Dates: start: 20040801
  2. FENOBARBITAL [Concomitant]
     Dosage: 100 MG, BID
     Route: 048
  3. TRILEPTAL [Suspect]
     Dosage: 600 MG, TID
     Route: 048
     Dates: start: 20050419
  4. FENOBARBITAL [Concomitant]
     Dosage: 150 MG, DAILY
     Route: 048
     Dates: start: 20050419
  5. FENOBARBITAL [Concomitant]
     Indication: EPILEPSY
     Dosage: 100 MG, DAILY

REACTIONS (4)
  - AGGRESSION [None]
  - HEAD INJURY [None]
  - CONVULSION [None]
  - SYNCOPE [None]
